FAERS Safety Report 5772069-3 (Version None)
Quarter: 2008Q2

REPORT INFORMATION
  Report Type: 
  Country: None (occurrence: None)
  Receive Date: 20080612
  Receipt Date: 20080612
  Transmission Date: 20081010
  Serious: Yes (Other)
  Sender: FDA-Public Use
  Company Number: None

PATIENT
  Age: 36 Year
  Sex: Male
  Weight: 94.3482 kg

DRUGS (1)
  1. SIMVASTATIN [Suspect]
     Indication: HYPERLIPIDAEMIA
     Dosage: 20MG ONCE DAILY PO
     Route: 048
     Dates: start: 20070801, end: 20080608

REACTIONS (7)
  - AMNESIA [None]
  - ANXIETY [None]
  - CONVULSION [None]
  - DEPRESSION [None]
  - FATIGUE [None]
  - LOSS OF LIBIDO [None]
  - MYOCLONUS [None]
